FAERS Safety Report 6334654-X (Version None)
Quarter: 2009Q3

REPORT INFORMATION
  Report Type: 
  Country: None (occurrence: None)
  Receive Date: 20090831
  Receipt Date: 20090817
  Transmission Date: 20100115
  Serious: No
  Sender: FDA-Public Use
  Company Number: JP-ROCHE-652649

PATIENT
  Sex: Female

DRUGS (5)
  1. TAMIFLU [Suspect]
     Indication: DRUG USE FOR UNKNOWN INDICATION
     Route: 048
  2. TAMIFLU [Suspect]
     Route: 048
  3. ANTIBIOTIC NOS [Concomitant]
     Dosage: DRUG NAME REPORTED: ANTIBIOTIC PREPARATIONS.
  4. ANALGESICS [Concomitant]
  5. ANTI-INFLAMMATORY NOS [Concomitant]
     Dosage: DRUG NAME REPORTED: ANTI-INFLAMMATORY AGENTS.

REACTIONS (1)
  - DRUG EXPOSURE DURING PREGNANCY [None]
